FAERS Safety Report 8313906-8 (Version None)
Quarter: 2012Q2

REPORT INFORMATION
  Report Type: 
  Country: None (occurrence: None)
  Receive Date: 20120426
  Receipt Date: 20120426
  Transmission Date: 20120825
  Serious: No
  Sender: FDA-Public Use
  Company Number: None

PATIENT
  Age: 6 Year
  Sex: Male
  Weight: 24.493 kg

DRUGS (2)
  1. ZYRTEC [Concomitant]
  2. SINGULAIR [Suspect]
     Indication: MULTIPLE ALLERGIES
     Dosage: 5 MG
     Route: 048
     Dates: start: 20111101, end: 20120418

REACTIONS (7)
  - BLUNTED AFFECT [None]
  - INSOMNIA [None]
  - SUICIDAL IDEATION [None]
  - DISTURBANCE IN ATTENTION [None]
  - DEPRESSION [None]
  - ANXIETY [None]
  - IRRITABILITY [None]
